FAERS Safety Report 19024465 (Version 2)
Quarter: 2021Q2

REPORT INFORMATION
  Report Type: Spontaneous
  Country: FR (occurrence: FR)
  Receive Date: 20210318
  Receipt Date: 20210401
  Transmission Date: 20210717
  Serious: Yes (Other)
  Sender: FDA-Public Use
  Company Number: NVSC2021FR057593

PATIENT
  Age: 49 Year
  Sex: Male
  Weight: 65 kg

DRUGS (4)
  1. NEORAL [Concomitant]
     Active Substance: CYCLOSPORINE
     Indication: IMMUNOSUPPRESSION
     Dosage: UNK (100 (UNITS NOT PROVIDED), UNKNOWN FREQ.)
     Route: 065
     Dates: start: 20190620
  2. SOLUPRED [Concomitant]
     Indication: IMMUNOSUPPRESSION
     Dosage: UNK (5 (UNITS NOT PROVIDED), UNKNOWN FREQ.)
     Route: 065
     Dates: start: 20120218
  3. CELLCEPT [Concomitant]
     Active Substance: MYCOPHENOLATE MOFETIL\MYCOPHENOLATE MOFETIL HYDROCHLORIDE
     Indication: IMMUNOSUPPRESSION
     Dosage: UNK (500 (UNITS NOT PROVIDED), UNKNOWN FREQ)
     Route: 065
     Dates: start: 20190103
  4. TACROLIMUS. [Suspect]
     Active Substance: TACROLIMUS
     Indication: RENAL TRANSPLANT
     Dosage: 2.5 MG,QD
     Route: 065
     Dates: start: 20160910, end: 20170118

REACTIONS (1)
  - Rectal adenocarcinoma [Recovering/Resolving]

NARRATIVE: CASE EVENT DATE: 20201110
